FAERS Safety Report 10983423 (Version 3)
Quarter: 2015Q2

REPORT INFORMATION
  Report Type: Spontaneous
  Country: JP (occurrence: JP)
  Receive Date: 20150403
  Receipt Date: 20150608
  Transmission Date: 20150821
  Serious: Yes (Hospitalization, Other)
  Sender: FDA-Public Use
  Company Number: JP-PFIZER INC-2015111123

PATIENT
  Age: 72 Year
  Sex: Female
  Weight: 36 kg

DRUGS (4)
  1. AZULFIDINE EN-TABS [Suspect]
     Active Substance: SULFASALAZINE
     Indication: RHEUMATOID ARTHRITIS
     Dosage: UNK
     Route: 048
     Dates: start: 201303, end: 20150122
  2. SEROQUEL [Suspect]
     Active Substance: QUETIAPINE FUMARATE
     Indication: DELIRIUM
     Dosage: UNK
     Route: 048
     Dates: start: 201408, end: 20150127
  3. RHEUMATREX [Suspect]
     Active Substance: METHOTREXATE SODIUM
     Indication: RHEUMATOID ARTHRITIS
     Dosage: 2 MG, WEEKLY
     Route: 048
     Dates: start: 200811, end: 20141126
  4. RHEUMATREX [Suspect]
     Active Substance: METHOTREXATE SODIUM
     Dosage: 2 MG, WEEKLY
     Route: 048
     Dates: start: 20141210, end: 20150117

REACTIONS (7)
  - Pleural effusion [Recovered/Resolved]
  - Neutropenia [Recovering/Resolving]
  - Pericardial effusion [Recovered/Resolved]
  - Blood albumin decreased [Recovered/Resolved]
  - Femoral neck fracture [Recovered/Resolved]
  - Pneumonia [Recovered/Resolved]
  - White blood cell count decreased [Recovering/Resolving]

NARRATIVE: CASE EVENT DATE: 20141122
